FAERS Safety Report 18595819 (Version 2)
Quarter: 2021Q1

REPORT INFORMATION
  Report Type: Report from Study
  Country: US (occurrence: US)
  Receive Date: 20201209
  Receipt Date: 20210115
  Transmission Date: 20210419
  Serious: Yes (Hospitalization, Other)
  Sender: FDA-Public Use
  Company Number: US-SHIRE-US202001363AA

PATIENT
  Age: 45 Year
  Sex: Female

DRUGS (1)
  1. GAMMAGARD LIQUID [Suspect]
     Active Substance: HUMAN IMMUNOGLOBULIN G
     Indication: PRIMARY IMMUNODEFICIENCY SYNDROME
     Dosage: UNK, UNKNOWN
     Route: 065

REACTIONS (10)
  - COVID-19 pneumonia [Unknown]
  - Deafness unilateral [Unknown]
  - Weight increased [Unknown]
  - Bladder disorder [Unknown]
  - Nausea [Unknown]
  - Multimorbidity [Unknown]
  - General physical health deterioration [Unknown]
  - Back disorder [Not Recovered/Not Resolved]
  - Facial paralysis [Unknown]
  - Hospitalisation [Unknown]

NARRATIVE: CASE EVENT DATE: 20201130
